FAERS Safety Report 6198802-7 (Version None)
Quarter: 2009Q2

REPORT INFORMATION
  Report Type: 
  Country: None (occurrence: None)
  Receive Date: 20090518
  Receipt Date: 20090518
  Transmission Date: 20091009
  Serious: No
  Sender: FDA-Public Use
  Company Number: None

PATIENT
  Age: 21 Year
  Sex: Female

DRUGS (1)
  1. INJ IVOMEC 1 % [Suspect]
     Indication: DRUG ADMINISTRATION ERROR
     Dosage: OPHT
     Route: 047
     Dates: start: 20090504, end: 20090504

REACTIONS (2)
  - ACCIDENTAL EXPOSURE [None]
  - BURNING SENSATION [None]
